FAERS Safety Report 9348010 (Version 1)
Quarter: 2013Q2

REPORT INFORMATION
  Report Type: Spontaneous
  Country: US (occurrence: US)
  Receive Date: 20130614
  Receipt Date: 20130614
  Transmission Date: 20140414
  Serious: Yes (Other)
  Sender: FDA-Public Use
  Company Number: US-SANOFI-AVENTIS-2013SA059351

PATIENT
  Age: 32 Year
  Sex: Female

DRUGS (2)
  1. LANTUS SOLOSTAR [Suspect]
     Indication: DIABETES MELLITUS
     Dosage: THERAPY START DATE - 2 YEARS?DOSAGE - VARIES 15-20 UNITS
     Route: 051
  2. SOLOSTAR [Suspect]
     Indication: DIABETES MELLITUS
     Dosage: THERAPY START DATE - 2 YEARS

REACTIONS (1)
  - Renal disorder [Unknown]
